FAERS Safety Report 12860513 (Version 4)
Quarter: 2017Q2

REPORT INFORMATION
  Report Type: Report from Study
  Country: US (occurrence: US)
  Receive Date: 20161019
  Receipt Date: 20170515
  Transmission Date: 20170830
  Serious: Yes (Life-Threatening, Hospitalization)
  Sender: FDA-Public Use
  Company Number: US-EISAI MEDICAL RESEARCH-EC-2016-021348

PATIENT
  Age: 33 Year
  Sex: Female
  Weight: 64.6 kg

DRUGS (20)
  1. NEXIUM [Concomitant]
     Active Substance: ESOMEPRAZOLE MAGNESIUM
  2. ZARXIO [Concomitant]
     Active Substance: FILGRASTIM-SNDZ
  3. ERIBULIN [Suspect]
     Active Substance: ERIBULIN
     Indication: BREAST CANCER METASTATIC
     Route: 041
     Dates: start: 20160915, end: 20161004
  4. GRANISETRON [Concomitant]
     Active Substance: GRANISETRON
  5. CLARITIN [Concomitant]
     Active Substance: LORATADINE
  6. RESTASIS [Concomitant]
     Active Substance: CYCLOSPORINE
  7. XANAX [Concomitant]
     Active Substance: ALPRAZOLAM
  8. ERIBULIN [Suspect]
     Active Substance: ERIBULIN
     Route: 041
     Dates: start: 20161025, end: 20170110
  9. POL6326 [Concomitant]
     Active Substance: INVESTIGATIONAL PRODUCT
     Route: 041
     Dates: start: 20161024, end: 20170111
  10. GABAPENTIN. [Concomitant]
     Active Substance: GABAPENTIN
  11. RELPAX [Concomitant]
     Active Substance: ELETRIPTAN HYDROBROMIDE
  12. FLEXERIL [Concomitant]
     Active Substance: CYCLOBENZAPRINE HYDROCHLORIDE
  13. MAGIC MOUTHWASH [Concomitant]
     Active Substance: DIPHENHYDRAMINE HYDROCHLORIDE\LIDOCAINE HYDROCHLORIDE\NYSTATIN
  14. POL6326 [Concomitant]
     Active Substance: INVESTIGATIONAL PRODUCT
     Indication: BREAST CANCER METASTATIC
     Route: 041
     Dates: start: 20160914, end: 20161011
  15. RELPAX [Concomitant]
     Active Substance: ELETRIPTAN HYDROBROMIDE
  16. VITAMIN B6 [Concomitant]
     Active Substance: PYRIDOXINE HYDROCHLORIDE
  17. XELODA [Concomitant]
     Active Substance: CAPECITABINE
  18. EMLA [Concomitant]
     Active Substance: LIDOCAINE\PRILOCAINE
  19. MOTRIN [Concomitant]
     Active Substance: IBUPROFEN
  20. MULTIVITAMIN [Concomitant]
     Active Substance: VITAMINS

REACTIONS (2)
  - Febrile neutropenia [Recovered/Resolved]
  - Escherichia pyelonephritis [Recovered/Resolved]

NARRATIVE: CASE EVENT DATE: 20161013
